FAERS Safety Report 4925107-1 (Version None)
Quarter: 2006Q1

REPORT INFORMATION
  Report Type: 
  Country: None (occurrence: None)
  Receive Date: 20060228
  Receipt Date: 20050923
  Transmission Date: 20060701
  Serious: No
  Sender: FDA-Public Use
  Company Number: US-GLAXOSMITHKLINE-A0575717A

PATIENT
  Age: 68 Year
  Sex: Male

DRUGS (3)
  1. AVODART [Suspect]
     Indication: BENIGN PROSTATIC HYPERPLASIA
     Dosage: .5MG PER DAY
     Route: 048
     Dates: start: 20050101
  2. LASIX [Concomitant]
     Route: 048
  3. PROSCAR [Concomitant]
     Route: 048

REACTIONS (6)
  - BRONCHITIS [None]
  - DRUG INEFFECTIVE [None]
  - DYSGEUSIA [None]
  - INFECTION [None]
  - RHINITIS [None]
  - SINUSITIS [None]
